FAERS Safety Report 7368871-7 (Version None)
Quarter: 2011Q1

REPORT INFORMATION
  Report Type: 
  Country: None (occurrence: None)
  Receive Date: 20110323
  Receipt Date: 20110228
  Transmission Date: 20110831
  Serious: Yes (Death, Other)
  Sender: FDA-Public Use
  Company Number: US-BAYER-200912792NA

PATIENT
  Sex: Male
  Weight: 79.365 kg

DRUGS (19)
  1. LASIX [Concomitant]
     Dosage: 400 MG, UNK
     Route: 042
  2. AMIODARONE HCL [Concomitant]
     Dosage: UNK
     Route: 042
  3. MIDAZOLAM [Concomitant]
     Dosage: UNK
     Route: 042
     Dates: start: 20011023, end: 20011023
  4. NOREPINEPHRINE BITARTRATE [Concomitant]
     Dosage: UNK
     Route: 042
     Dates: start: 20011023, end: 20011023
  5. HEPARIN [Concomitant]
     Dosage: UNK
     Route: 042
     Dates: start: 20011023, end: 20011023
  6. CEFUROXIME [Concomitant]
     Dosage: UNK
     Route: 042
     Dates: start: 20011023, end: 20011023
  7. PLATELETS [Concomitant]
     Dosage: 2 U, UNK
     Route: 042
     Dates: start: 20011023
  8. PROTAMINE SULFATE [Concomitant]
     Dosage: UNK
     Route: 042
     Dates: start: 20011023, end: 20011023
  9. LOVENOX [Concomitant]
     Dosage: 80 MG, UNK
     Route: 058
     Dates: start: 20011020
  10. FRESH FROZEN PLASMA [Concomitant]
     Dosage: 1 U, UNK
     Route: 042
     Dates: start: 20011023
  11. LASIX [Concomitant]
     Dosage: 100 MG, UNK
     Route: 042
     Dates: start: 20011020
  12. DOBUTAMINE [Concomitant]
     Dosage: UNK
     Route: 042
     Dates: start: 20011023, end: 20011023
  13. TRASYLOL [Suspect]
     Indication: CORONARY ARTERY BYPASS
     Dosage: 2000000 KIU, UNK
     Route: 042
     Dates: start: 20011023, end: 20011023
  14. KETAMINE HCL [Concomitant]
     Dosage: UNK
     Route: 042
     Dates: start: 20011023, end: 20011023
  15. CONTRAST MEDIA [Concomitant]
     Indication: CATHETERISATION CARDIAC
     Dosage: UNK
     Dates: start: 20011021
  16. DOPAMINE [Concomitant]
     Route: 042
  17. OXYGEN [Concomitant]
  18. VANCOMYCIN [Concomitant]
     Dosage: 1000 MG, UNK
     Route: 042
     Dates: start: 20011023, end: 20011023
  19. RED BLOOD CELLS [Concomitant]
     Dosage: 3 U, UNK
     Route: 042
     Dates: start: 20011023

REACTIONS (5)
  - PAIN [None]
  - RENAL FAILURE ACUTE [None]
  - INJURY [None]
  - RENAL FAILURE [None]
  - UNEVALUABLE EVENT [None]
